FAERS Safety Report 21605898 (Version 1)
Quarter: 2022Q4

REPORT INFORMATION
  Report Type: Spontaneous
  Country: CN (occurrence: CN)
  Receive Date: 20221116
  Receipt Date: 20221116
  Transmission Date: 20230112
  Serious: Yes (Other)
  Sender: FDA-Public Use
  Company Number: None

PATIENT
  Age: 44 Year
  Sex: Male
  Weight: 60 kg

DRUGS (15)
  1. CYCLOPHOSPHAMIDE [Suspect]
     Active Substance: CYCLOPHOSPHAMIDE
     Indication: B-cell lymphoma
     Dosage: 1.2 G, QD, DILUTED WITH 100 ML 0.9% SODIUM CHLORIDE
     Route: 041
     Dates: start: 20221018, end: 20221018
  2. SODIUM CHLORIDE [Suspect]
     Active Substance: SODIUM CHLORIDE
     Indication: Medication dilution
     Dosage: 100 ML, QD, USED TO DILUTE 1.2 G CYCLOPHOSPHAMIDE
     Route: 041
     Dates: start: 20221018, end: 20221018
  3. SODIUM CHLORIDE [Suspect]
     Active Substance: SODIUM CHLORIDE
     Dosage: 100 ML, QD, USED TO DILUTE 100 MG RITUXIMAB
     Route: 041
     Dates: start: 20221017, end: 20221017
  4. SODIUM CHLORIDE [Suspect]
     Active Substance: SODIUM CHLORIDE
     Dosage: 250 ML, QD, USED TO DILUTE 750 MG DEXRAZOXANE
     Route: 041
     Dates: start: 20221018, end: 20221018
  5. RITUXIMAB [Suspect]
     Active Substance: RITUXIMAB
     Indication: B-cell lymphoma
     Dosage: 100 MG, QD, DILUTED WITH 100 ML 0.9% SODIUM CHLORIDE
     Route: 041
     Dates: start: 20221015, end: 20221015
  6. RITUXIMAB [Suspect]
     Active Substance: RITUXIMAB
     Dosage: 400 MG, QD, DILUTED WITH 500 ML 0.9% SODIUM CHLORIDE
     Route: 041
     Dates: start: 20221015, end: 20221015
  7. RITUXIMAB [Suspect]
     Active Substance: RITUXIMAB
     Dosage: 100 MG, QD, DILUTED WITH 100 ML 0.9% SODIUM CHLORIDE
     Route: 041
     Dates: start: 20221017, end: 20221017
  8. VINCRISTINE SULFATE [Suspect]
     Active Substance: VINCRISTINE SULFATE
     Indication: B-cell lymphoma
     Dosage: 2 MG, QD, DILUTED WITH 40 ML 0.9% SODIUM CHLORIDE
     Route: 042
     Dates: start: 20221018, end: 20221018
  9. EPIRUBICIN HYDROCHLORIDE [Suspect]
     Active Substance: EPIRUBICIN HYDROCHLORIDE
     Indication: B-cell lymphoma
     Dosage: 100 MG, QD, DILUTED WITH 250 ML 0.9% SODIUM CHLORIDE
     Route: 041
     Dates: start: 20221018, end: 20221018
  10. PREDNISOLONE ACETATE [Suspect]
     Active Substance: PREDNISOLONE ACETATE
     Indication: B-cell lymphoma
     Dosage: 95 MG, QD
     Route: 048
     Dates: start: 20221016, end: 20221020
  11. DEXRAZOXANE [Concomitant]
     Active Substance: DEXRAZOXANE
     Indication: Cardiovascular event prophylaxis
     Dosage: 750 MG, QD, DILUTED WITH 250 ML 0.9% SODIUM CHLORIDE
     Route: 041
     Dates: start: 20221018, end: 20221018
  12. SODIUM CHLORIDE [Concomitant]
     Active Substance: SODIUM CHLORIDE
     Indication: Vehicle solution use
     Dosage: 100 ML, QD, USED TO DILUTE 100 MG RITUXIMAB
     Route: 041
     Dates: start: 20221015, end: 20221015
  13. SODIUM CHLORIDE [Concomitant]
     Active Substance: SODIUM CHLORIDE
     Dosage: 500 ML, QD, USED TO DILUTE 400 MG RITUXIMAB
     Route: 041
     Dates: start: 20221015, end: 20221015
  14. SODIUM CHLORIDE [Concomitant]
     Active Substance: SODIUM CHLORIDE
     Dosage: 40 ML, QD, USED TO DILUTE 2 MG VINCRISTINE SULPHATE
     Route: 042
     Dates: start: 20221018, end: 20221018
  15. SODIUM CHLORIDE [Concomitant]
     Active Substance: SODIUM CHLORIDE
     Dosage: 250 ML, QD, USED TO DILUTE 100 MG EPIRUBICIN HYDROCHLORIDE
     Route: 041
     Dates: start: 20221018, end: 20221018

REACTIONS (2)
  - White blood cell count decreased [Recovered/Resolved]
  - Neutrophil count decreased [Recovered/Resolved]

NARRATIVE: CASE EVENT DATE: 20221030
